FAERS Safety Report 5212934-9 (Version None)
Quarter: 2007Q1

REPORT INFORMATION
  Report Type: 
  Country: None (occurrence: None)
  Receive Date: 20070119
  Receipt Date: 20070116
  Transmission Date: 20070707
  Serious: Yes (Hospitalization, Other)
  Sender: FDA-Public Use
  Company Number: US-AVENTIS-200710361US

PATIENT
  Sex: Female

DRUGS (3)
  1. LANTUS [Suspect]
     Dates: start: 19990101
  2. LANTUS [Suspect]
  3. INSULIN LISPRO [Concomitant]
     Dosage: DOSE: UNK

REACTIONS (6)
  - BLOOD GLUCOSE INCREASED [None]
  - DIZZINESS [None]
  - DRUG INEFFECTIVE [None]
  - HYPOGLYCAEMIA [None]
  - TACHYCARDIA [None]
  - VOMITING [None]
